FAERS Safety Report 10656956 (Version 1)
Quarter: 2014Q4

REPORT INFORMATION
  Report Type: Spontaneous
  Country: TR (occurrence: None)
  Receive Date: 20141215
  Receipt Date: 20141215
  Transmission Date: 20150529
  Serious: Yes (Hospitalization)
  Sender: FDA-Public Use
  Company Number: INT_00536_2014

PATIENT
  Age: 14 Month
  Sex: Male

DRUGS (3)
  1. CARBOPLATIN. [Concomitant]
     Active Substance: CARBOPLATIN
  2. ETOPOSID [Concomitant]
     Active Substance: ETOPOSIDE
  3. CISPLATIN. [Suspect]
     Active Substance: CISPLATIN
     Indication: ACCIDENTAL EXPOSURE TO PRODUCT

REACTIONS (13)
  - Respiratory distress [None]
  - Aspartate aminotransferase abnormal [None]
  - Hepatic function abnormal [None]
  - Seizure [None]
  - Haemodialysis [None]
  - Ototoxicity [None]
  - Drug dispensing error [None]
  - Alanine aminotransferase abnormal [None]
  - Pancreatitis acute [None]
  - Leukopenia [None]
  - Accidental overdose [None]
  - Renal failure [None]
  - Bone marrow failure [None]
